FAERS Safety Report 10153648 (Version 1)
Quarter: 2014Q2

REPORT INFORMATION
  Report Type: Report from Study
  Country: US (occurrence: US)
  Receive Date: 20140505
  Receipt Date: 20140505
  Transmission Date: 20141212
  Serious: Yes (Hospitalization, Other)
  Sender: FDA-Public Use
  Company Number: US-BRISTOL-MYERS SQUIBB COMPANY-20673117

PATIENT
  Age: 69 Year
  Sex: Male

DRUGS (14)
  1. DAPAGLIFLOZIN [Suspect]
     Indication: TYPE 2 DIABETES MELLITUS
     Dosage: LAST DOSE:31MAR2014
     Route: 048
     Dates: start: 20140319, end: 20140331
  2. PLACEBO [Suspect]
     Indication: TYPE 2 DIABETES MELLITUS
     Dosage: RUN IN PHASE:29JAN2014
     Route: 048
     Dates: start: 20140319, end: 20140331
  3. METFORMIN HCL [Suspect]
     Indication: TYPE 2 DIABETES MELLITUS
     Route: 048
     Dates: start: 20121221
  4. GLIMEPIRIDE [Suspect]
     Indication: TYPE 2 DIABETES MELLITUS
     Route: 048
     Dates: start: 20140101
  5. LANTUS [Suspect]
     Indication: TYPE 2 DIABETES MELLITUS
     Route: 058
  6. COREG [Concomitant]
     Indication: HYPERTENSION
     Route: 048
  7. LOSARTAN POTASSIUM [Concomitant]
     Indication: HYPERTENSION
     Route: 048
  8. ACETYLSALICYLIC ACID [Concomitant]
     Indication: ANTIPLATELET THERAPY
     Route: 048
  9. WARFARIN [Concomitant]
     Indication: ANTIPLATELET THERAPY
     Route: 048
  10. ISOSORBIDE [Concomitant]
     Indication: HYPERTENSION
     Route: 048
  11. GABAPENTIN [Concomitant]
     Indication: DIABETIC NEUROPATHY
     Route: 048
  12. PRILOSEC [Concomitant]
     Indication: GASTROOESOPHAGEAL REFLUX DISEASE
     Route: 048
  13. MUCINEX [Concomitant]
     Indication: COUGH
     Route: 048
  14. ATORVASTATIN [Concomitant]
     Route: 048

REACTIONS (4)
  - Confusional state [Recovering/Resolving]
  - Hypertension [Recovered/Resolved]
  - Pollakiuria [Recovered/Resolved]
  - Urinary tract infection [Unknown]
